FAERS Safety Report 7289097-1 (Version None)
Quarter: 2011Q1

REPORT INFORMATION
  Report Type: 
  Country: None (occurrence: None)
  Receive Date: 20110211
  Receipt Date: 20110202
  Transmission Date: 20110831
  Serious: Yes (Other)
  Sender: FDA-Public Use
  Company Number: US-ASTRAZENECA-2011SE05685

PATIENT
  Age: 67 Year
  Sex: Female
  Weight: 108.9 kg

DRUGS (6)
  1. CRESTOR [Suspect]
     Indication: HYPERCHOLESTEROLAEMIA
     Route: 048
     Dates: start: 20050101, end: 20070101
  2. CHEMO [Concomitant]
     Dates: end: 20080301
  3. ASPIRIN [Concomitant]
  4. RADIATION [Concomitant]
     Dates: end: 20080301
  5. XANAX [Concomitant]
  6. CARDIZEM CD [Concomitant]

REACTIONS (1)
  - LUNG NEOPLASM MALIGNANT [None]
